FAERS Safety Report 7319387-5 (Version None)
Quarter: 2011Q1

REPORT INFORMATION
  Report Type: 
  Country: None (occurrence: None)
  Receive Date: 20110228
  Receipt Date: 20100302
  Transmission Date: 20110831
  Serious: Yes (Hospitalization)
  Sender: FDA-Public Use
  Company Number: A0847580A

PATIENT
  Age: 45 Year
  Sex: Female

DRUGS (3)
  1. LAMOTRIGINE [Suspect]
     Dosage: 200MG THREE TIMES PER DAY
     Route: 048
  2. TOPAMAX [Concomitant]
  3. TRILEPTAL [Concomitant]

REACTIONS (1)
  - CONVULSION [None]
